FAERS Safety Report 6369525-6 (Version None)
Quarter: 2009Q3

REPORT INFORMATION
  Report Type: 
  Country: None (occurrence: None)
  Receive Date: 20090917
  Receipt Date: 20090909
  Transmission Date: 20100115
  Serious: Yes (Death)
  Sender: FDA-Public Use
  Company Number: 20097379

PATIENT
  Age: 85 Year
  Sex: Female

DRUGS (2)
  1. LIORESAL [Suspect]
     Indication: MUSCLE SPASTICITY
     Dosage: MCG, DAILY, INTRATHECAL; INFUSION RATE, 0.3598 ML
     Route: 037
  2. MORPHINE SULFATE [Concomitant]

REACTIONS (2)
  - CARDIAC ARREST [None]
  - RENAL FAILURE [None]
